FAERS Safety Report 6573496-7 (Version None)
Quarter: 2010Q1

REPORT INFORMATION
  Report Type: 
  Country: None (occurrence: None)
  Receive Date: 20100208
  Receipt Date: 20100128
  Transmission Date: 20100710
  Serious: No
  Sender: FDA-Public Use
  Company Number: US-B.I. PHARMACEUTICALS,INC./RIDGEFIELD-2009-BP-14959BP

PATIENT
  Sex: Female
  Weight: 49.9 kg

DRUGS (4)
  1. SPIRIVA [Suspect]
     Indication: CHRONIC OBSTRUCTIVE PULMONARY DISEASE
     Dosage: 18 MCG
     Route: 055
     Dates: start: 20091201, end: 20091228
  2. SPIRIVA [Suspect]
     Indication: BRONCHITIS
  3. FLOVENT [Concomitant]
     Indication: BRONCHITIS
     Dates: start: 20081225
  4. XOPENEX [Concomitant]

REACTIONS (6)
  - DEPRESSION [None]
  - DRY MOUTH [None]
  - DRY THROAT [None]
  - DYSPHAGIA [None]
  - ODYNOPHAGIA [None]
  - OROPHARYNGEAL PAIN [None]
